FAERS Safety Report 6557065-0 (Version None)
Quarter: 2010Q1

REPORT INFORMATION
  Report Type: 
  Country: None (occurrence: None)
  Receive Date: 20100128
  Receipt Date: 20100122
  Transmission Date: 20100710
  Serious: Yes (Life-Threatening)
  Sender: FDA-Public Use
  Company Number: US-GENENTECH-295642

PATIENT
  Sex: Male
  Weight: 99.1 kg

DRUGS (6)
  1. XOLAIR [Suspect]
     Indication: ASTHMA
     Dosage: 300 MG, Q2W
     Route: 058
     Dates: start: 20090620
  2. NASONEX [Concomitant]
     Indication: RHINITIS ALLERGIC
     Dosage: 4 PUFF, QD
     Dates: start: 20090703
  3. SYMBICORT [Concomitant]
     Indication: ASTHMA
     Dosage: 2 PUFF, BID
     Dates: start: 20080320
  4. XOPENEX [Concomitant]
     Indication: DRUG USE FOR UNKNOWN INDICATION
  5. NEXIUM [Concomitant]
     Indication: GASTROOESOPHAGEAL REFLUX DISEASE
     Dosage: 40 MG, QD
     Dates: start: 20090703
  6. SINGULAIR [Suspect]
     Indication: ASTHMA
     Dosage: 10 MG, UNK
     Dates: start: 20080320

REACTIONS (1)
  - ANGIOEDEMA [None]
